FAERS Safety Report 7894056-1 (Version None)
Quarter: 2011Q4

REPORT INFORMATION
  Report Type: 
  Country: None (occurrence: None)
  Receive Date: 20111104
  Receipt Date: 20111101
  Transmission Date: 20120403
  Serious: Yes (Other)
  Sender: FDA-Public Use
  Company Number: US-ABBOTT-11P-163-0859234-00

PATIENT
  Sex: Female
  Weight: 60.382 kg

DRUGS (7)
  1. HUMIRA [Suspect]
     Indication: RHEUMATOID ARTHRITIS
     Route: 058
     Dates: start: 20090801, end: 20110401
  2. METHOTREXATE [Suspect]
     Indication: RHEUMATOID ARTHRITIS
  3. CELEBREX [Suspect]
     Indication: RASH
  4. ENBREL [Suspect]
     Indication: RHEUMATOID ARTHRITIS
     Dates: start: 20110506, end: 20110727
  5. HUMIRA [Suspect]
     Dates: start: 20110601
  6. TRIAMTERENE [Suspect]
     Indication: OPEN WOUND
     Dates: start: 20110501
  7. SULFACETAMIDE SODIUM [Suspect]
     Indication: OPEN WOUND
     Dates: start: 20110514, end: 20110522

REACTIONS (14)
  - ALOPECIA [None]
  - IMMUNODEFICIENCY [None]
  - JOINT STIFFNESS [None]
  - RHEUMATOID ARTHRITIS [None]
  - FALL [None]
  - IMPAIRED HEALING [None]
  - CONTUSION [None]
  - MEMORY IMPAIRMENT [None]
  - PSORIASIS [None]
  - RASH [None]
  - DRUG INEFFECTIVE [None]
  - WEIGHT DECREASED [None]
  - OPEN WOUND [None]
  - TREMOR [None]
